FAERS Safety Report 14655365 (Version 1)
Quarter: 2018Q1

REPORT INFORMATION
  Report Type: Spontaneous
  Country: FR (occurrence: FR)
  Receive Date: 20180319
  Receipt Date: 20180319
  Transmission Date: 20180509
  Serious: Yes (Other)
  Sender: FDA-Public Use
  Company Number: FR-MERCK KGAA-2044072

PATIENT
  Age: 54 Year
  Sex: Female

DRUGS (1)
  1. NOVOTHYROX [Suspect]
     Active Substance: LEVOTHYROXINE SODIUM
     Indication: POST PROCEDURAL HYPOTHYROIDISM

REACTIONS (13)
  - Fatigue [None]
  - Muscle spasms [None]
  - Gait disturbance [None]
  - Adverse event [None]
  - Dyspnoea [None]
  - Insomnia [None]
  - Blood thyroid stimulating hormone increased [None]
  - Irritability [None]
  - Stress [None]
  - Dizziness [None]
  - Apathy [None]
  - Thyroxine increased [None]
  - Headache [None]

NARRATIVE: CASE EVENT DATE: 20170206
